FAERS Safety Report 12924709 (Version 1)
Quarter: 2016Q4

REPORT INFORMATION
  Report Type: Spontaneous
  Country: BR (occurrence: BR)
  Receive Date: 20161109
  Receipt Date: 20161109
  Transmission Date: 20170207
  Serious: Yes (Other)
  Sender: FDA-Public Use
  Company Number: BR-PFIZER INC-2016516195

PATIENT
  Age: 68 Year
  Sex: Female

DRUGS (1)
  1. PRISTIQ EXTENDED-RELEASE [Suspect]
     Active Substance: DESVENLAFAXINE SUCCINATE
     Dosage: UNK
     Dates: start: 20161029

REACTIONS (6)
  - Dysuria [Unknown]
  - Urinary retention [Unknown]
  - Tremor [Unknown]
  - Sluggishness [Unknown]
  - Cystitis [Unknown]
  - Fatigue [Unknown]

NARRATIVE: CASE EVENT DATE: 2016
